FAERS Safety Report 20148558 (Version 1)
Quarter: 2021Q4

REPORT INFORMATION
  Report Type: Spontaneous
  Country: IT (occurrence: IT)
  Receive Date: 20211204
  Receipt Date: 20211204
  Transmission Date: 20220303
  Serious: Yes (Hospitalization, Other)
  Sender: FDA-Public Use
  Company Number: IT-MINISAL02-812667

PATIENT
  Age: 19 Year
  Sex: Male

DRUGS (2)
  1. OLANZAPINE [Suspect]
     Active Substance: OLANZAPINE
     Indication: Intentional self-injury
     Dosage: 22.5 MILLIGRAM (TOTAL)
     Route: 048
     Dates: start: 20211120, end: 20211120
  2. XANAX [Suspect]
     Active Substance: ALPRAZOLAM
     Indication: Intentional self-injury
     Dosage: 7 GRAM (TOTAL)
     Route: 048
     Dates: start: 20211120, end: 20211120

REACTIONS (2)
  - Substance abuse [Recovering/Resolving]
  - Sopor [Recovering/Resolving]

NARRATIVE: CASE EVENT DATE: 20211120
